FAERS Safety Report 21157571 (Version 1)
Quarter: 2022Q3

REPORT INFORMATION
  Report Type: Spontaneous
  Country: US (occurrence: None)
  Receive Date: 20220731
  Receipt Date: 20220731
  Transmission Date: 20221027
  Serious: Yes (unspecified)
  Sender: FDA-Public Use
  Company Number: None

PATIENT
  Age: 48 Year
  Sex: Female
  Weight: 89.1 kg

DRUGS (4)
  1. REMICADE [Suspect]
     Active Substance: INFLIXIMAB
     Indication: Colitis ulcerative
     Dosage: OTHER FREQUENCY : LOADING PHASE;?
     Route: 042
     Dates: start: 20201120, end: 20210305
  2. LEVOTHYROXINE [Concomitant]
     Active Substance: LEVOTHYROXINE
  3. COLESTIPOL [Concomitant]
     Active Substance: COLESTIPOL
  4. Culturelle probiotic Cetirizine [Concomitant]

REACTIONS (7)
  - Aspartate aminotransferase increased [None]
  - Alanine aminotransferase increased [None]
  - Liver function test increased [None]
  - Drug ineffective [None]
  - Therapy cessation [None]
  - Squamous cell carcinoma of the oral cavity [None]
  - Biopsy liver [None]

NARRATIVE: CASE EVENT DATE: 20210305
